FAERS Safety Report 6177145-1 (Version None)
Quarter: 2009Q2

REPORT INFORMATION
  Report Type: 
  Country: None (occurrence: None)
  Receive Date: 20090504
  Receipt Date: 20090421
  Transmission Date: 20091009
  Serious: Yes (Hospitalization)
  Sender: FDA-Public Use
  Company Number: BE-PFIZER INC-2009202090

PATIENT

DRUGS (4)
  1. BLINDED *PLACEBO [Suspect]
     Indication: SYSTEMIC CANDIDA
     Dosage: UNK
     Route: 042
     Dates: start: 20090317, end: 20090330
  2. BLINDED ANIDULAFUNGIN [Suspect]
     Indication: SYSTEMIC CANDIDA
     Dosage: UNK
     Route: 042
     Dates: start: 20090317, end: 20090330
  3. VORICONAZOLE [Suspect]
     Dosage: UNK
     Route: 042
     Dates: start: 20090317
  4. VORICONAZOLE [Suspect]
     Dosage: UNK
     Route: 048
     Dates: end: 20090420

REACTIONS (2)
  - DISEASE PROGRESSION [None]
  - PYREXIA [None]
